FAERS Safety Report 8960536 (Version 1)
Quarter: 2012Q4

REPORT INFORMATION
  Report Type: Spontaneous
  Country: DE (occurrence: None)
  Receive Date: 20121203
  Receipt Date: 20121203
  Transmission Date: 20130627
  Serious: Yes (Hospitalization)
  Sender: FDA-Public Use
  Company Number: GER/GER/12/0026765

PATIENT
  Age: 37 Year
  Sex: Male

DRUGS (3)
  1. OLANZAPINE (OLANZAPINE) [Suspect]
     Indication: DRUG USE FOR UNKNOWN INDICATION
     Route: 048
     Dates: start: 20120321
  2. OLANZAPINE (OLANZAPINE) [Suspect]
     Indication: DRUG USE FOR UNKNOWN INDICATION
     Route: 048
     Dates: start: 20120322, end: 20120402
  3. DIPIPERON [Suspect]
     Indication: DRUG USE FOR UNKNOWN INDICATION
     Route: 048
     Dates: start: 20120321, end: 20120406

REACTIONS (4)
  - Hepatitis A virus test positive [None]
  - Gamma-glutamyltransferase increased [None]
  - Hepatitis B virus test positive [None]
  - Hepatitis C virus test positive [None]
